FAERS Safety Report 14992280 (Version 1)
Quarter: 2018Q2

REPORT INFORMATION
  Report Type: Spontaneous
  Country: US (occurrence: US)
  Receive Date: 20180608
  Receipt Date: 20180608
  Transmission Date: 20180711
  Serious: Yes (Death)
  Sender: FDA-Public Use
  Company Number: US-ALSI-201800379

PATIENT
  Age: 62 Year
  Sex: Male

DRUGS (1)
  1. NITROGEN. [Suspect]
     Active Substance: NITROGEN
     Indication: COMPLETED SUICIDE
     Route: 055

REACTIONS (1)
  - Completed suicide [Fatal]
